FAERS Safety Report 24539004 (Version 1)
Quarter: 2024Q4

REPORT INFORMATION
  Report Type: Spontaneous
  Country: FR (occurrence: FR)
  Receive Date: 20241023
  Receipt Date: 20241023
  Transmission Date: 20250115
  Serious: Yes (Congenital Anomaly, Other)
  Sender: SANDOZ
  Company Number: FR-NOVPHSZ-PHHY2019FR176416

PATIENT
  Age: 1 Year
  Sex: Male

DRUGS (3)
  1. VALPROATE SODIUM [Suspect]
     Active Substance: VALPROATE SODIUM
     Indication: Foetal exposure during pregnancy
     Dosage: 500 MG, Q12H (500 MG, BID)
     Route: 064
     Dates: start: 200805
  2. VALPROATE SODIUM [Suspect]
     Active Substance: VALPROATE SODIUM
     Dosage: 500 MG, Q12H (500 MG, BID)
     Route: 064
     Dates: start: 200901
  3. VALPROATE SODIUM [Suspect]
     Active Substance: VALPROATE SODIUM
     Indication: Foetal exposure during pregnancy
     Dosage: UNK
     Route: 064

REACTIONS (16)
  - Psychomotor skills impaired [Unknown]
  - Respiratory distress [Unknown]
  - Executive dysfunction [Unknown]
  - Strabismus [Unknown]
  - Haemangioma of skin [Unknown]
  - Intellectual disability [Unknown]
  - Dysmorphism [Unknown]
  - Learning disorder [Unknown]
  - Disturbance in attention [Unknown]
  - Developmental delay [Recovering/Resolving]
  - Speech disorder [Unknown]
  - Epilepsy [Recovering/Resolving]
  - Foot deformity [Unknown]
  - Petit mal epilepsy [Recovering/Resolving]
  - Disturbance in attention [Unknown]
  - Foetal exposure during pregnancy [Unknown]

NARRATIVE: CASE EVENT DATE: 20100501
